FAERS Safety Report 5070174-0 (Version None)
Quarter: 2006Q3

REPORT INFORMATION
  Report Type: 
  Country: None (occurrence: None)
  Receive Date: 20060714
  Receipt Date: 20060409
  Transmission Date: 20061208
  Serious: No
  Sender: FDA-Public Use
  Company Number: 2006SP001639

PATIENT
  Sex: Female

DRUGS (7)
  1. LUNESTA [Suspect]
     Indication: INSOMNIA
     Dosage: 1 MG;HS;ORAL
     Route: 048
  2. SYNTHROID [Concomitant]
  3. BENICAR [Concomitant]
  4. LUMIGAN [Concomitant]
  5. LOTEMAX [Concomitant]
  6. CALCIUM GLUCONATE [Concomitant]
  7. MULTIVITAMIN [Concomitant]

REACTIONS (2)
  - DRUG INEFFECTIVE [None]
  - INSOMNIA [None]
